FAERS Safety Report 9507525 (Version 2)
Quarter: 2013Q4

REPORT INFORMATION
  Report Type: Spontaneous
  Country: US (occurrence: US)
  Receive Date: 20130909
  Receipt Date: 20131028
  Transmission Date: 20140711
  Serious: Yes (Hospitalization)
  Sender: FDA-Public Use
  Company Number: US-ASTELLAS-2013US009306

PATIENT
  Age: 86 Year
  Sex: 0
  Weight: 95 kg

DRUGS (1)
  1. MYRBETRIQ [Suspect]
     Indication: PRODUCT USED FOR UNKNOWN INDICATION
     Dosage: UNK
     Route: 048
     Dates: start: 20130812, end: 201308

REACTIONS (4)
  - Cerebrovascular accident [Unknown]
  - Hallucination [Unknown]
  - Dementia [Unknown]
  - Hypersensitivity [Unknown]
